FAERS Safety Report 18358234 (Version 2)
Quarter: 2020Q4

REPORT INFORMATION
  Report Type: Report from Study
  Country: FR (occurrence: FR)
  Receive Date: 20201007
  Receipt Date: 20201019
  Transmission Date: 20210114
  Serious: Yes (Hospitalization)
  Sender: FDA-Public Use
  Company Number: FR-ROCHE-2308370

PATIENT
  Age: 76 Year
  Sex: Male

DRUGS (9)
  1. KARDEGIC [Concomitant]
     Active Substance: ASPIRIN DL-LYSINE
     Route: 065
     Dates: start: 20190419
  2. ENTRECTINIB [Suspect]
     Active Substance: ENTRECTINIB
     Indication: METASTATIC NEOPLASM
     Dosage: DATE OF LAST DOSE PRIOR TO THE SAE 12/APR/2019
     Route: 048
     Dates: start: 20190329
  3. OMEXEL [Concomitant]
     Active Substance: TAMSULOSIN HYDROCHLORIDE
     Indication: BENIGN PROSTATIC HYPERPLASIA
  4. NOVOPULMON [Concomitant]
     Active Substance: BUDESONIDE
  5. DUTASTERIDE. [Concomitant]
     Active Substance: DUTASTERIDE
  6. XATRAL [Concomitant]
     Active Substance: ALFUZOSIN
  7. PLAVIX [Concomitant]
     Active Substance: CLOPIDOGREL BISULFATE
     Route: 065
     Dates: start: 20190419
  8. EUPANTOL [Concomitant]
     Active Substance: PANTOPRAZOLE SODIUM
     Dates: start: 20190419
  9. PRAVASTATIN. [Concomitant]
     Active Substance: PRAVASTATIN

REACTIONS (3)
  - Somnolence [Recovered/Resolved]
  - Dysarthria [Recovered/Resolved]
  - Balance disorder [Recovered/Resolved]

NARRATIVE: CASE EVENT DATE: 20190412
